FAERS Safety Report 9723690 (Version 3)
Quarter: 2014Q1

REPORT INFORMATION
  Report Type: Report from Study
  Country: IE (occurrence: IE)
  Receive Date: 20131202
  Receipt Date: 20140206
  Transmission Date: 20141002
  Serious: Yes (Hospitalization)
  Sender: FDA-Public Use
  Company Number: IE-GLAXOSMITHKLINE-B0949019A

PATIENT
  Age: 33 Year
  Sex: Female

DRUGS (6)
  1. DABRAFENIB [Suspect]
     Indication: METASTATIC MALIGNANT MELANOMA
     Dosage: 150MG TWICE PER DAY
     Route: 048
  2. TRAMETINIB [Suspect]
     Indication: METASTATIC MALIGNANT MELANOMA
     Dosage: 2MG PER DAY
     Route: 048
  3. OXYCONTIN [Concomitant]
     Indication: PAIN
     Dosage: 10MG TWICE PER DAY
     Route: 048
  4. PARACETAMOL [Concomitant]
     Indication: PYREXIA
     Dosage: 1G AS REQUIRED
     Route: 048
     Dates: start: 20131101
  5. CYCLIZINE [Concomitant]
     Indication: NAUSEA
     Route: 048
     Dates: start: 20131101
  6. CALCICHEW [Concomitant]
     Indication: BLOOD CALCIUM
     Route: 048
     Dates: start: 20131104

REACTIONS (1)
  - Blood bilirubin increased [Recovered/Resolved]
